FAERS Safety Report 8573774-6 (Version None)
Quarter: 2012Q3

REPORT INFORMATION
  Report Type: 
  Country: None (occurrence: None)
  Receive Date: 20120806
  Receipt Date: 20120608
  Transmission Date: 20120928
  Serious: Yes (Hospitalization)
  Sender: FDA-Public Use
  Company Number: FR-GLAXOSMITHKLINE-B0819696A

PATIENT
  Sex: Male

DRUGS (9)
  1. REVLIMID [Suspect]
     Indication: MULTIPLE MYELOMA
     Route: 048
     Dates: start: 20100101, end: 20110401
  2. THALIDOMIDE [Suspect]
     Indication: MULTIPLE MYELOMA
     Route: 048
     Dates: start: 20060301, end: 20070701
  3. VINCRISTINE [Suspect]
     Indication: MULTIPLE MYELOMA
     Route: 042
     Dates: start: 20051101, end: 20060201
  4. VELCADE [Suspect]
     Indication: MULTIPLE MYELOMA
     Route: 058
     Dates: start: 20090901, end: 20100101
  5. VINDESINE [Suspect]
     Indication: MULTIPLE MYELOMA
     Route: 042
     Dates: start: 20051101, end: 20060201
  6. CARMUSTINE [Suspect]
     Indication: MULTIPLE MYELOMA
     Route: 042
     Dates: start: 20051101, end: 20060201
  7. DOXORUBICIN HYDROCHLORIDE [Suspect]
     Indication: MULTIPLE MYELOMA
     Route: 042
     Dates: start: 20051101, end: 20060201
  8. CYCLOPHOSPHAMIDE [Suspect]
     Indication: MULTIPLE MYELOMA
     Route: 042
     Dates: start: 20051101, end: 20060201
  9. ALKERAN [Suspect]
     Indication: MULTIPLE MYELOMA
     Route: 042
     Dates: start: 20040701, end: 20051101

REACTIONS (1)
  - TONGUE NEOPLASM MALIGNANT STAGE UNSPECIFIED [None]
